FAERS Safety Report 16700148 (Version 2)
Quarter: 2019Q3

REPORT INFORMATION
  Report Type: Spontaneous
  Country: ES (occurrence: ES)
  Receive Date: 20190813
  Receipt Date: 20190904
  Transmission Date: 20191004
  Serious: Yes (Hospitalization, Other)
  Sender: FDA-Public Use
  Company Number: PHHY2019ES184824

PATIENT
  Age: 42 Year
  Sex: Male

DRUGS (1)
  1. COSENTYX [Suspect]
     Active Substance: SECUKINUMAB
     Indication: ANKYLOSING SPONDYLITIS
     Dosage: 150 MG, QMO (EVERY 4 WEEKS)
     Route: 058
     Dates: start: 201903, end: 20190710

REACTIONS (11)
  - Hepatic cyst [Unknown]
  - Portal fibrosis [Unknown]
  - Blood bilirubin increased [Recovering/Resolving]
  - Cholangitis [Unknown]
  - Diarrhoea [Not Recovered/Not Resolved]
  - Blood immunoglobulin M decreased [Unknown]
  - Pyrexia [Not Recovered/Not Resolved]
  - Splenomegaly [Unknown]
  - Hepatitis cholestatic [Recovering/Resolving]
  - Weight decreased [Not Recovered/Not Resolved]
  - Pleural effusion [Unknown]

NARRATIVE: CASE EVENT DATE: 20190803
